FAERS Safety Report 6685949-1 (Version None)
Quarter: 2010Q2

REPORT INFORMATION
  Report Type: 
  Country: None (occurrence: None)
  Receive Date: 20100419
  Receipt Date: 20100405
  Transmission Date: 20101027
  Serious: Yes (Hospitalization, Other)
  Sender: FDA-Public Use
  Company Number: PHHY2010CA20100

PATIENT
  Sex: Female

DRUGS (15)
  1. ALISKIREN ALI+ [Suspect]
     Indication: HYPERTENSION
     Dosage: 150 MG, PER DAY
     Route: 048
     Dates: start: 20100209, end: 20100215
  2. SYNTHROID [Concomitant]
     Route: 048
  3. GLUCOPHAGE [Concomitant]
     Dosage: 850 MG, TID
     Route: 048
  4. COUMADIN [Concomitant]
  5. LIPIDIL [Concomitant]
     Dosage: 160 MG, UNK
  6. RHOTRAL [Concomitant]
     Dosage: 100 MG, BID
     Route: 048
  7. DIGOXIN [Concomitant]
     Dosage: 0.125 MG, UNK
     Route: 048
  8. LASIX [Concomitant]
     Dosage: 40 MG, UNK
     Route: 048
  9. MICARDIS [Concomitant]
     Dosage: 12.5 MG, UNK
     Route: 048
  10. CELEXA [Concomitant]
     Dosage: 40 MG, UNK
  11. RIVAK SR [Concomitant]
     Dosage: 600 MG, UNK
  12. BETA BLOCKING AGENTS [Concomitant]
  13. ARCENRIA BREZE [Concomitant]
  14. DIURETICS [Concomitant]
  15. ANGIOTENSIN CONVERTING ENZYME BLOCKERS [Concomitant]

REACTIONS (7)
  - ANAEMIA [None]
  - ATRIAL FIBRILLATION [None]
  - BLOOD PRESSURE INADEQUATELY CONTROLLED [None]
  - DYSPHAGIA [None]
  - INFECTION [None]
  - INTERNATIONAL NORMALISED RATIO ABNORMAL [None]
  - PNEUMONIA ASPIRATION [None]
